FAERS Safety Report 9493614 (Version 1)
Quarter: 2013Q3

REPORT INFORMATION
  Report Type: Report from Study
  Country: US (occurrence: US)
  Receive Date: 20130902
  Receipt Date: 20130902
  Transmission Date: 20140515
  Serious: Yes (Death)
  Sender: FDA-Public Use
  Company Number: US-ROCHE-1268739

PATIENT
  Age: 66 Year
  Sex: 0

DRUGS (2)
  1. BEVACIZUMAB [Suspect]
     Indication: PANCREATIC CARCINOMA
     Route: 065
  2. CAPECITABINE [Suspect]
     Indication: PANCREATIC CARCINOMA
     Route: 065

REACTIONS (2)
  - Duodenal perforation [Fatal]
  - Sepsis [Fatal]
